FAERS Safety Report 20060142 (Version 1)
Quarter: 2021Q4

REPORT INFORMATION
  Report Type: Report from Study
  Country: US (occurrence: US)
  Receive Date: 20211111
  Receipt Date: 20211111
  Transmission Date: 20220303
  Serious: Yes (Other)
  Sender: FDA-Public Use
  Company Number: US-ABBVIE-21K-163-4153662-00

PATIENT
  Sex: Female

DRUGS (1)
  1. RINVOQ [Suspect]
     Active Substance: UPADACITINIB
     Indication: Rheumatoid arthritis
     Route: 048

REACTIONS (5)
  - Deafness [Recovering/Resolving]
  - Bell^s palsy [Recovering/Resolving]
  - Ear swelling [Recovering/Resolving]
  - Ear inflammation [Recovering/Resolving]
  - Herpes zoster [Recovering/Resolving]
